FAERS Safety Report 8827855 (Version 3)
Quarter: 2012Q4

REPORT INFORMATION
  Report Type: Report from Study
  Country: US (occurrence: US)
  Receive Date: 20121005
  Receipt Date: 20121101
  Transmission Date: 20130627
  Serious: Yes (Other)
  Sender: FDA-Public Use
  Company Number: US-ABBOTT-12P-163-0988560-00

PATIENT
  Age: 60 Year
  Sex: Female
  Weight: 47.67 kg

DRUGS (6)
  1. HUMIRA [Suspect]
     Indication: PSORIASIS
     Route: 058
     Dates: start: 20120827, end: 20120827
  2. HUMIRA [Suspect]
     Route: 058
     Dates: start: 20120903, end: 20120903
  3. HUMIRA [Suspect]
     Route: 058
     Dates: start: 20120903
  4. HYDROCHLOROTHIAZIDE [Concomitant]
     Indication: PRODUCT USED FOR UNKNOWN INDICATION
  5. IBUPROFEN [Concomitant]
     Indication: PRODUCT USED FOR UNKNOWN INDICATION
     Dates: end: 20120924
  6. IBUPROFEN [Concomitant]
     Dosage: PRN

REACTIONS (4)
  - Breast calcifications [Unknown]
  - Breast mass [Unknown]
  - Injection site pain [Unknown]
  - Puncture site swelling [Unknown]
